FAERS Safety Report 5372802-9 (Version None)
Quarter: 2007Q2

REPORT INFORMATION
  Report Type: 
  Country: None (occurrence: None)
  Receive Date: 20070627
  Receipt Date: 20070615
  Transmission Date: 20071010
  Serious: Yes (Other)
  Sender: FDA-Public Use
  Company Number: US-PFIZER INC-2007049703

PATIENT
  Sex: Female

DRUGS (2)
  1. NORPACE [Suspect]
     Route: 048
  2. DYNACIRC [Suspect]
     Route: 048

REACTIONS (1)
  - PHARYNGEAL OEDEMA [None]
